FAERS Safety Report 5813041-4 (Version None)
Quarter: 2008Q3

REPORT INFORMATION
  Report Type: 
  Country: None (occurrence: None)
  Receive Date: 20080717
  Receipt Date: 20071113
  Transmission Date: 20090109
  Serious: No
  Sender: FDA-Public Use
  Company Number: A0694079A

PATIENT
  Age: 40 Year
  Sex: Male

DRUGS (1)
  1. NICORETTE [Suspect]
     Dates: start: 20071107, end: 20071108

REACTIONS (4)
  - ASTHENIA [None]
  - BLOOD PRESSURE INCREASED [None]
  - HEART RATE INCREASED [None]
  - INTENTIONAL DRUG MISUSE [None]
